FAERS Safety Report 9381022 (Version 2)
Quarter: 2014Q1

REPORT INFORMATION
  Report Type: Report from Study
  Country: US (occurrence: US)
  Receive Date: 20130703
  Receipt Date: 20140207
  Transmission Date: 20141002
  Serious: Yes (Hospitalization)
  Sender: FDA-Public Use
  Company Number: US-ROCHE-1243035

PATIENT
  Sex: Male

DRUGS (14)
  1. XELODA [Suspect]
     Indication: COLORECTAL CANCER
     Route: 065
     Dates: start: 20130129, end: 20130312
  2. XELODA [Suspect]
     Route: 065
     Dates: end: 20140106
  3. FLUOXETINE [Concomitant]
     Dosage: QAM
     Route: 065
  4. MAGNESIUM CARBONATE [Concomitant]
     Dosage: 311/232 MG
     Route: 065
  5. VITAMIN D3 [Concomitant]
     Dosage: 2000 UNITS
     Route: 065
  6. FISH OIL [Concomitant]
     Route: 065
  7. GARLIC [Concomitant]
     Route: 065
  8. SALMON OIL [Concomitant]
     Route: 065
  9. AMBIEN [Concomitant]
     Route: 065
  10. ZOFRAN [Concomitant]
     Route: 065
  11. PROCHLORPERAZINE MALEATE [Concomitant]
     Route: 065
  12. HYDROCODONE/ACETAMINOPHEN [Concomitant]
     Route: 065
  13. OXYCODONE HCL [Concomitant]
     Route: 065
  14. NEURONTIN (UNITED STATES) [Concomitant]
     Route: 065

REACTIONS (12)
  - Rectal discharge [Unknown]
  - Rectal discharge [Unknown]
  - Constipation [Not Recovered/Not Resolved]
  - Abdominal pain [Not Recovered/Not Resolved]
  - Vomiting [Unknown]
  - Intestinal obstruction [Not Recovered/Not Resolved]
  - Asthenia [Not Recovered/Not Resolved]
  - Neuropathy peripheral [Unknown]
  - Restless legs syndrome [Unknown]
  - Upper respiratory tract infection [Unknown]
  - Sneezing [Unknown]
  - Cough [Unknown]
